FAERS Safety Report 11950144 (Version 1)
Quarter: 2016Q1

REPORT INFORMATION
  Report Type: Other
  Country: US (occurrence: US)
  Receive Date: 20160125
  Receipt Date: 20160125
  Transmission Date: 20160526
  Serious: Yes (Death)
  Sender: FDA-Public Use
  Company Number: US-LEHIGH_VALLEY-USA-POI0580201600065

PATIENT
  Age: 67 Year
  Sex: Male

DRUGS (6)
  1. DILTIAZEM [Suspect]
     Active Substance: DILTIAZEM
     Dates: end: 2014
  2. SOTALOL. [Suspect]
     Active Substance: SOTALOL
     Dates: end: 2014
  3. WARFARIN [Suspect]
     Active Substance: WARFARIN
     Dates: end: 2014
  4. OXYCODONE HCL CAPSULES [Suspect]
     Active Substance: OXYCODONE HYDROCHLORIDE
     Dates: end: 2014
  5. LORAZEPAM. [Suspect]
     Active Substance: LORAZEPAM
     Dates: end: 2014
  6. METFORMIN [Suspect]
     Active Substance: METFORMIN HYDROCHLORIDE
     Dates: end: 2014

REACTIONS (1)
  - Completed suicide [Fatal]

NARRATIVE: CASE EVENT DATE: 2014
